FAERS Safety Report 6313752-0 (Version None)
Quarter: 2009Q3

REPORT INFORMATION
  Report Type: 
  Country: None (occurrence: None)
  Receive Date: 20090818
  Receipt Date: 20080730
  Transmission Date: 20100115
  Serious: No
  Sender: FDA-Public Use
  Company Number: US-BRISTOL-MYERS SQUIBB COMPANY-14285308

PATIENT
  Sex: Male

DRUGS (1)
  1. REYATAZ [Suspect]
     Dates: start: 20080101

REACTIONS (1)
  - OCULAR ICTERUS [None]
